FAERS Safety Report 21560946 (Version 1)
Quarter: 2022Q4

REPORT INFORMATION
  Report Type: Spontaneous
  Country: US (occurrence: US)
  Receive Date: 20221107
  Receipt Date: 20221107
  Transmission Date: 20230113
  Serious: Yes (Other)
  Sender: FDA-Public Use
  Company Number: US-002147023-NVSC2022US249514

PATIENT
  Age: 71 Year
  Sex: Male

DRUGS (1)
  1. LAMPRENE [Suspect]
     Active Substance: CLOFAZIMINE
     Indication: Product used for unknown indication
     Dosage: 100 MG, QD
     Route: 065
     Dates: start: 20220914

REACTIONS (3)
  - Chronic obstructive pulmonary disease [Unknown]
  - Concomitant disease progression [Unknown]
  - Nausea [Unknown]
